FAERS Safety Report 23098101 (Version 1)
Quarter: 2023Q4

REPORT INFORMATION
  Report Type: Spontaneous
  Country: US (occurrence: None)
  Receive Date: 20231018
  Receipt Date: 20231018
  Transmission Date: 20240109
  Serious: No
  Sender: FDA-Public Use
  Company Number: None

PATIENT
  Age: 48 Year
  Sex: Female

DRUGS (1)
  1. TREMFYA [Suspect]
     Active Substance: GUSELKUMAB
     Indication: Psoriasis
     Dosage: FREQUENCY : AS DIRECTED;?INJECT 100MG SUBCUT/\NEOUSLY /\T WEEK 4 THEN EVERY 8 WEEKS /\S DIRECTED
     Route: 058
     Dates: start: 202309

REACTIONS (2)
  - Illness [None]
  - Pyrexia [None]
